APPROVED DRUG PRODUCT: CALCITRIOL
Active Ingredient: CALCITRIOL
Strength: 0.001MG/ML
Dosage Form/Route: INJECTABLE;INJECTION
Application: A075836 | Product #001
Applicant: FRESENIUS KABI USA LLC
Approved: Dec 31, 2002 | RLD: No | RS: No | Type: DISCN